FAERS Safety Report 10171996 (Version 2)
Quarter: 2014Q2

REPORT INFORMATION
  Report Type: Spontaneous
  Country: DE (occurrence: DE)
  Receive Date: 20140515
  Receipt Date: 20140515
  Transmission Date: 20141212
  Serious: Yes (Hospitalization)
  Sender: FDA-Public Use
  Company Number: DE-PFIZER INC-2014103152

PATIENT
  Age: 16 Year
  Sex: Female

DRUGS (2)
  1. RAPAMUNE [Suspect]
     Dosage: 1 MG, UNK
  2. RAPAMUNE [Suspect]
     Dosage: 2 MG, UNK

REACTIONS (3)
  - Drug level fluctuating [Not Recovered/Not Resolved]
  - Glomerular filtration rate decreased [Not Recovered/Not Resolved]
  - Creatinine renal clearance decreased [Not Recovered/Not Resolved]
